FAERS Safety Report 8989713 (Version 7)
Quarter: 2019Q3

REPORT INFORMATION
  Report Type: Spontaneous
  Country: US (occurrence: US)
  Receive Date: 20121228
  Receipt Date: 20190705
  Transmission Date: 20191005
  Serious: Yes (Hospitalization, Disabling, Other)
  Sender: FDA-Public Use
  Company Number: US-009507513-1212USA010564

PATIENT
  Sex: Female

DRUGS (8)
  1. VITAMIN D (UNSPECIFIED) [Concomitant]
     Active Substance: VITAMIN D NOS
     Dosage: 200 MG, UNK
     Dates: start: 1922
  2. FOSAMAX [Suspect]
     Active Substance: ALENDRONATE SODIUM
     Dosage: UNK
     Route: 048
     Dates: start: 20040913, end: 20041108
  3. CALCIUM (UNSPECIFIED) [Concomitant]
     Active Substance: CALCIUM
     Dosage: 400 MG, UNK
     Dates: start: 1922
  4. FOSAMAX [Suspect]
     Active Substance: ALENDRONATE SODIUM
     Indication: OSTEOPOROSIS
     Dosage: 70 MG, QW
     Route: 048
     Dates: start: 200409
  5. VITAMINS (UNSPECIFIED) [Concomitant]
     Active Substance: VITAMINS
     Dosage: UNK
     Dates: start: 1922
  6. ATENOLOL. [Concomitant]
     Active Substance: ATENOLOL
     Indication: HYPERTENSION
  7. LEVOTHYROXINE SODIUM. [Concomitant]
     Active Substance: LEVOTHYROXINE SODIUM
     Indication: HYPOTHYROIDISM
     Dosage: 88 MICROGRAM, UNK
     Route: 048
     Dates: start: 1975
  8. ALENDRONATE SODIUM. [Concomitant]
     Active Substance: ALENDRONATE SODIUM
     Indication: OSTEOPOROSIS
     Dosage: 70 MG, QW
     Route: 048
     Dates: end: 201008

REACTIONS (29)
  - Low turnover osteopathy [Not Recovered/Not Resolved]
  - Type 2 diabetes mellitus [Unknown]
  - Bronchitis chronic [Not Recovered/Not Resolved]
  - Constipation [Not Recovered/Not Resolved]
  - Macular degeneration [Unknown]
  - Open reduction of fracture [Unknown]
  - Dementia [Unknown]
  - Rheumatoid arthritis [Unknown]
  - Hyperlipidaemia [Unknown]
  - Peptic ulcer [Unknown]
  - Femur fracture [Not Recovered/Not Resolved]
  - Haematoma [Unknown]
  - Impaired healing [Unknown]
  - Osteopenia [Unknown]
  - Femur fracture [Not Recovered/Not Resolved]
  - Contusion [Unknown]
  - Haemoglobin decreased [Unknown]
  - Cerebral small vessel ischaemic disease [Unknown]
  - Cataract operation [Unknown]
  - Fall [Unknown]
  - Stress fracture [Not Recovered/Not Resolved]
  - Osteoporosis [Not Recovered/Not Resolved]
  - Urosepsis [Unknown]
  - Vascular calcification [Unknown]
  - Ecchymosis [Unknown]
  - Skin abrasion [Unknown]
  - Osteoarthritis [Unknown]
  - Shoulder operation [Unknown]
  - Adrenal adenoma [Unknown]

NARRATIVE: CASE EVENT DATE: 20041108
